FAERS Safety Report 5025452-8 (Version None)
Quarter: 2006Q2

REPORT INFORMATION
  Report Type: 
  Country: None (occurrence: None)
  Receive Date: 20060608
  Receipt Date: 20060530
  Transmission Date: 20061013
  Serious: Yes (Other)
  Sender: FDA-Public Use
  Company Number: 2006003855

PATIENT
  Age: 63 Year
  Sex: Male
  Weight: 90.7194 kg

DRUGS (14)
  1. VIAGRA [Suspect]
     Indication: ERECTILE DYSFUNCTION
  2. ASPIRIN [Concomitant]
  3. VITAMINS (VITAMINS) [Concomitant]
  4. LASIX [Concomitant]
  5. POTASSIUM (POTASSIUM) [Concomitant]
  6. VITAMIN B (VITAMIN B) [Concomitant]
  7. NORVASC [Concomitant]
  8. COREG [Concomitant]
  9. PREVACID [Concomitant]
  10. GUAIFENEX DM (DEXTROMETHORPHAN HYDROBROMIDE, GUAIFENESIN) [Concomitant]
  11. ZYRTEC-D 12 HOUR [Concomitant]
  12. FISH OIL (FISH OIL) [Concomitant]
  13. ALBUTEROL [Concomitant]
  14. MORPHINE SULFATE [Concomitant]

REACTIONS (3)
  - DIABETES MELLITUS [None]
  - DRUG INEFFECTIVE [None]
  - LUNG DISORDER [None]
